FAERS Safety Report 8930359 (Version 2)
Quarter: 2013Q2

REPORT INFORMATION
  Report Type: Report from Study
  Country: JP (occurrence: JP)
  Receive Date: 20121128
  Receipt Date: 20130405
  Transmission Date: 20140414
  Serious: Yes (Other)
  Sender: FDA-Public Use
  Company Number: JP-ROCHE-1160645

PATIENT
  Age: 75 Year
  Sex: Male

DRUGS (5)
  1. PEG-INTERFERON ALFA 2A [Suspect]
     Indication: HEPATIC CIRRHOSIS
     Route: 058
     Dates: start: 20120131, end: 20120207
  2. PEG-INTERFERON ALFA 2A [Suspect]
     Route: 058
     Dates: start: 20120214, end: 20120228
  3. RIBAVIRIN [Suspect]
     Indication: HEPATIC CIRRHOSIS
     Route: 048
     Dates: start: 20120131, end: 20120213
  4. RIBAVIRIN [Suspect]
     Route: 048
     Dates: start: 20120214, end: 20120305
  5. ALFAROL [Concomitant]
     Indication: HEPATIC CIRRHOSIS
     Route: 048
     Dates: end: 20120305

REACTIONS (3)
  - Neutrophil count decreased [Recovered/Resolved]
  - Prostate cancer [Not Recovered/Not Resolved]
  - Platelet count decreased [Recovered/Resolved]
